FAERS Safety Report 9630418 (Version 1)
Quarter: 2013Q4

REPORT INFORMATION
  Report Type: Report from Study
  Country: US (occurrence: US)
  Receive Date: 20131018
  Receipt Date: 20131018
  Transmission Date: 20140711
  Serious: Yes (Hospitalization)
  Sender: FDA-Public Use
  Company Number: US-ROCHE-1290176

PATIENT
  Age: 39 Year
  Sex: Male
  Weight: 81.27 kg

DRUGS (15)
  1. AVASTIN [Suspect]
     Indication: COLON CANCER
     Dosage: 5 MG/KG EVERY 4 WEEKS
     Route: 041
     Dates: start: 20080205, end: 20130124
  2. AVASTIN [Suspect]
     Indication: MALIGNANT PERITONEAL NEOPLASM
  3. CELEXA (UNITED STATES) [Concomitant]
     Dosage: DAILY
     Route: 065
  4. CLARITIN [Concomitant]
     Route: 065
  5. KLOR-CON [Concomitant]
     Route: 065
  6. LANTUS [Concomitant]
     Route: 065
  7. NOVOLOG [Concomitant]
     Dosage: AS DIRECTED
     Route: 065
  8. OPIUM TINCTURE [Concomitant]
  9. ZOFRAN [Concomitant]
  10. CAMPTOSAR [Concomitant]
     Dosage: GIVE OVER 90 MINUTES
     Route: 041
  11. LEUCOVORIN [Concomitant]
     Dosage: GIVE OVER120 MINUTES
     Route: 041
  12. FLUOROURACIL [Concomitant]
     Route: 042
  13. DECADRON [Concomitant]
     Route: 040
  14. ATROPINE [Concomitant]
     Route: 058
  15. NEULASTA [Concomitant]
     Route: 065

REACTIONS (7)
  - Small intestinal obstruction [Recovered/Resolved]
  - Flatulence [Unknown]
  - Nausea [Recovered/Resolved]
  - Neuropathy peripheral [Unknown]
  - Anxiety [Unknown]
  - Mucosal inflammation [Unknown]
  - Vomiting [Recovered/Resolved]
